FAERS Safety Report 8921725 (Version 1)
Quarter: 2012Q4

REPORT INFORMATION
  Report Type: 
  Country: US (occurrence: US)
  Receive Date: 20121122
  Receipt Date: 20121122
  Transmission Date: 20130627
  Serious: Yes (Hospitalization, Other)
  Sender: FDA-Public Use
  Company Number: US-B.I. PHARMACEUTICALS,INC./RIDGEFIELD-2012-BI-00535BP

PATIENT
  Age: 84 None
  Sex: Female
  Weight: 90 kg

DRUGS (5)
  1. PRADAXA [Suspect]
     Indication: ANTICOAGULANT THERAPY
     Dosage: 150 mg
     Route: 048
     Dates: start: 20120101, end: 201210
  2. LEVOTHYROXINE [Concomitant]
     Route: 048
  3. DIOVAN [Concomitant]
     Indication: HYPERTENSION
     Route: 048
  4. CARDIZEM [Concomitant]
     Indication: HYPERTENSION
     Route: 048
  5. ZETIA [Concomitant]
     Route: 048

REACTIONS (2)
  - Osteoarthritis [Recovered/Resolved]
  - Haemoglobin decreased [Not Recovered/Not Resolved]
